FAERS Safety Report 10059459 (Version 2)
Quarter: 2014Q2

REPORT INFORMATION
  Report Type: Spontaneous
  Country: JP (occurrence: JP)
  Receive Date: 20140404
  Receipt Date: 20140422
  Transmission Date: 20141212
  Serious: Yes (Other)
  Sender: FDA-Public Use
  Company Number: JP-PFIZER INC-2014092966

PATIENT
  Age: 29 Year
  Sex: Female

DRUGS (2)
  1. ZITHROMAC [Suspect]
     Indication: OROPHARYNGEAL PAIN
     Dosage: 500 MG, DAILY
     Route: 048
  2. ZITHROMAC [Suspect]
     Indication: COUGH

REACTIONS (1)
  - Epilepsy [Recovered/Resolved]
